FAERS Safety Report 8128053-8 (Version None)
Quarter: 2012Q1

REPORT INFORMATION
  Report Type: 
  Country: None (occurrence: None)
  Receive Date: 20120210
  Receipt Date: 20120201
  Transmission Date: 20120608
  Serious: Yes (Hospitalization)
  Sender: FDA-Public Use
  Company Number: US-JNJFOC-20120109045

PATIENT
  Sex: Female
  Weight: 54.43 kg

DRUGS (6)
  1. CRESTOR [Concomitant]
     Indication: BLOOD CHOLESTEROL
  2. HYDROCHLOROTHIAZIDE [Concomitant]
     Indication: BLOOD PRESSURE
  3. XARELTO [Suspect]
     Indication: THROMBOSIS PROPHYLAXIS
     Route: 048
     Dates: start: 20120103, end: 20120113
  4. LOSARTAN POTASSIUM [Concomitant]
  5. XARELTO [Suspect]
     Indication: KNEE ARTHROPLASTY
     Route: 048
     Dates: start: 20120103, end: 20120113
  6. CELEXA [Concomitant]
     Indication: NERVOUSNESS

REACTIONS (6)
  - GASTRIC HAEMORRHAGE [None]
  - ASTHENIA [None]
  - BLOOD URINE PRESENT [None]
  - LOSS OF CONSCIOUSNESS [None]
  - DECREASED APPETITE [None]
  - NAUSEA [None]
